FAERS Safety Report 7010147-1 (Version None)
Quarter: 2010Q3

REPORT INFORMATION
  Report Type: 
  Country: None (occurrence: None)
  Receive Date: 20100923
  Receipt Date: 20100921
  Transmission Date: 20110219
  Serious: Yes (Other)
  Sender: FDA-Public Use
  Company Number: US-PFIZER INC-2010096835

PATIENT
  Sex: Female

DRUGS (6)
  1. MEDROL [Suspect]
     Indication: BACK PAIN
     Dosage: UNK
     Dates: start: 20011201
  2. MEDROL [Suspect]
     Indication: GAIT DISTURBANCE
  3. PERCOCET [Suspect]
     Indication: BACK PAIN
     Dosage: UNK
  4. PERCOCET [Suspect]
     Indication: GAIT DISTURBANCE
  5. ULTRAM [Suspect]
     Indication: BACK PAIN
     Dosage: UNK
  6. ULTRAM [Suspect]
     Indication: GAIT DISTURBANCE

REACTIONS (5)
  - ABDOMINAL PAIN [None]
  - BACK PAIN [None]
  - DRUG INEFFECTIVE [None]
  - MUSCULOSKELETAL PAIN [None]
  - NEURALGIA [None]
